FAERS Safety Report 5418970-1 (Version None)
Quarter: 2007Q3

REPORT INFORMATION
  Report Type: 
  Country: None (occurrence: None)
  Receive Date: 20070817
  Receipt Date: 20070809
  Transmission Date: 20080115
  Serious: Yes (Life-Threatening, Hospitalization)
  Sender: FDA-Public Use
  Company Number: JP-PFIZER INC-2007066229

PATIENT
  Sex: Female

DRUGS (11)
  1. ADRIAMYCIN PFS [Suspect]
     Indication: ACUTE LYMPHOCYTIC LEUKAEMIA
     Dosage: DAILY DOSE:18MG
     Route: 042
     Dates: start: 20070314, end: 20070316
  2. ONCOVIN [Suspect]
     Indication: ACUTE LYMPHOCYTIC LEUKAEMIA
     Dosage: DAILY DOSE:1.3MG
     Route: 042
     Dates: start: 20070314, end: 20070403
  3. LEUNASE [Suspect]
     Indication: ACUTE LYMPHOCYTIC LEUKAEMIA
     Dosage: DAILY DOSE:3600I.U.
     Route: 042
     Dates: start: 20070327, end: 20070403
  4. PREDONINE [Concomitant]
     Dosage: DAILY DOSE:30MG
     Route: 042
     Dates: start: 20070305, end: 20070405
  5. PREDONINE [Concomitant]
     Dosage: DAILY DOSE:40MG
     Route: 042
     Dates: start: 20070406, end: 20070409
  6. PREDONINE [Concomitant]
     Dosage: DAILY DOSE:30MG
     Route: 042
     Dates: start: 20070410, end: 20070415
  7. PREDONINE [Concomitant]
     Dosage: DAILY DOSE:25MG
     Route: 042
     Dates: start: 20070416, end: 20070420
  8. PREDONINE [Concomitant]
     Dosage: DAILY DOSE:20MG
     Route: 042
  9. THYRADIN S [Concomitant]
     Dosage: DAILY DOSE:50MCG
     Route: 048
  10. MEILAX [Concomitant]
     Dosage: DAILY DOSE:1MG
     Route: 048
     Dates: start: 20070305, end: 20070403
  11. POLYMYXIN B SULFATE [Concomitant]
     Dosage: TEXT:DAILY DOSE 300MIU
     Route: 042
     Dates: start: 20070308, end: 20070316

REACTIONS (3)
  - COAGULOPATHY [None]
  - HEPATIC FAILURE [None]
  - HYPERAMMONAEMIA [None]
